FAERS Safety Report 23363396 (Version 7)
Quarter: 2024Q2

REPORT INFORMATION
  Report Type: Report from Study
  Country: CA (occurrence: CA)
  Receive Date: 20240103
  Receipt Date: 20240405
  Transmission Date: 20240715
  Serious: Yes (Other)
  Sender: FDA-Public Use
  Company Number: CA-BAUSCH-BL-2023-008529

PATIENT
  Age: 67 Year
  Sex: Female

DRUGS (6)
  1. SILIQ [Suspect]
     Active Substance: BRODALUMAB
     Indication: Psoriasis
     Dosage: 210MG/ 1.5 ML, WEEKLY (WEEK 0-WEEK 2)
     Route: 058
     Dates: start: 20230517, end: 20230531
  2. SILIQ [Suspect]
     Active Substance: BRODALUMAB
     Dosage: 210MG/1.5ML, Q2 WEEKS
     Route: 058
     Dates: start: 2023, end: 2023
  3. SILIQ [Suspect]
     Active Substance: BRODALUMAB
     Dosage: 210MG/1.5ML, Q2 WEEKS
     Route: 058
     Dates: start: 20231228, end: 202401
  4. SILIQ [Suspect]
     Active Substance: BRODALUMAB
     Dosage: 210MG/1.5ML, Q1 WEEKS (OFF-LABEL)
     Route: 058
     Dates: start: 202401, end: 202402
  5. SILIQ [Suspect]
     Active Substance: BRODALUMAB
     Dosage: 210MG/1.5ML, Q1 WEEKS (OFF-LABEL)
     Route: 058
     Dates: start: 20240202
  6. SILIQ [Suspect]
     Active Substance: BRODALUMAB
     Dosage: 210MG/1.5ML, Q1 WEEKS (OFF-LABEL)
     Route: 058
     Dates: start: 20240315

REACTIONS (10)
  - Cataract [Recovering/Resolving]
  - Rash macular [Not Recovered/Not Resolved]
  - Dyspnoea exertional [Unknown]
  - Psoriasis [Not Recovered/Not Resolved]
  - Anxiety [Unknown]
  - Fall [Recovering/Resolving]
  - Contusion [Recovering/Resolving]
  - Injection site haemorrhage [Unknown]
  - Drug ineffective [Unknown]
  - Off label use [Unknown]

NARRATIVE: CASE EVENT DATE: 20230101
